FAERS Safety Report 5069927-4 (Version None)
Quarter: 2006Q3

REPORT INFORMATION
  Report Type: 
  Country: None (occurrence: None)
  Receive Date: 20060714
  Receipt Date: 20060404
  Transmission Date: 20061208
  Serious: No
  Sender: FDA-Public Use
  Company Number: 2006SP001523

PATIENT
  Age: 73 Year
  Sex: Female
  Weight: 99.7913 kg

DRUGS (5)
  1. LUNESTA [Suspect]
     Indication: INSOMNIA
     Dosage: 2 MG;HS;ORAL
     Route: 048
     Dates: start: 20060402
  2. AMBIEN [Concomitant]
  3. CELEBREX [Concomitant]
  4. NEURONTIN [Concomitant]
  5. BENICAR [Concomitant]

REACTIONS (3)
  - HEADACHE [None]
  - PAIN [None]
  - SOMNOLENCE [None]
